FAERS Safety Report 6831329-5 (Version None)
Quarter: 2010Q3

REPORT INFORMATION
  Report Type: 
  Country: None (occurrence: None)
  Receive Date: 20100709
  Receipt Date: 20100709
  Transmission Date: 20110219
  Serious: Yes (Death)
  Sender: FDA-Public Use
  Company Number: None

PATIENT
  Sex: Female
  Weight: 72.5755 kg

DRUGS (1)
  1. YAZ [Suspect]
     Dosage: ONCE DAILY PO
     Route: 048

REACTIONS (5)
  - CHOLECYSTECTOMY [None]
  - COUGH [None]
  - DYSPNOEA [None]
  - NEOPLASM MALIGNANT [None]
  - PAIN [None]
